FAERS Safety Report 5066221-2 (Version None)
Quarter: 2006Q3

REPORT INFORMATION
  Report Type: 
  Country: None (occurrence: None)
  Receive Date: 20060801
  Receipt Date: 20060720
  Transmission Date: 20061208
  Serious: Yes (Hospitalization, Other)
  Sender: FDA-Public Use
  Company Number: US-JNJFOC-20060504300

PATIENT
  Sex: Female
  Weight: 62.6 kg

DRUGS (7)
  1. REMICADE [Suspect]
     Route: 042
  2. REMICADE [Suspect]
     Indication: SCLERODERMA
     Route: 042
  3. CODEINE [Concomitant]
     Indication: PAIN
  4. OXYCONTIN [Concomitant]
     Indication: PAIN
  5. SYNTHROID [Concomitant]
     Indication: THYROID DISORDER
  6. PERCOCET [Concomitant]
     Indication: PAIN
  7. LORCET-HD [Concomitant]
     Indication: PAIN

REACTIONS (8)
  - AMNESIA [None]
  - CHEST PAIN [None]
  - COUGH [None]
  - DEVICE MALFUNCTION [None]
  - LIVER FUNCTION TEST ABNORMAL [None]
  - PHARYNGOLARYNGEAL PAIN [None]
  - PNEUMONIA [None]
  - STAPHYLOCOCCAL INFECTION [None]
